FAERS Safety Report 17316110 (Version 1)
Quarter: 2020Q1

REPORT INFORMATION
  Report Type: Spontaneous
  Country: JP (occurrence: JP)
  Receive Date: 20200124
  Receipt Date: 20200124
  Transmission Date: 20200409
  Serious: Yes (Hospitalization)
  Sender: FDA-Public Use
  Company Number: JP-ALLERGAN-2002723US

PATIENT
  Age: 7 Decade

DRUGS (1)
  1. ASENAPINE MALEATE - BP [Suspect]
     Active Substance: ASENAPINE MALEATE
     Indication: DELIRIUM
     Dosage: 10 MG, QD
     Route: 060

REACTIONS (3)
  - Glossoptosis [Unknown]
  - Swollen tongue [Unknown]
  - Off label use [Unknown]

NARRATIVE: CASE EVENT DATE: 20200115
